FAERS Safety Report 10394902 (Version 2)
Quarter: 2014Q3

REPORT INFORMATION
  Report Type: Report from Study
  Country: AU (occurrence: AU)
  Receive Date: 20140820
  Receipt Date: 20140904
  Transmission Date: 20150326
  Serious: Yes (Hospitalization, Other)
  Sender: FDA-Public Use
  Company Number: AU-BRISTOL-MYERS SQUIBB COMPANY-21305990

PATIENT
  Age: 67 Year
  Sex: Female

DRUGS (10)
  1. ORENCIA [Suspect]
     Active Substance: ABATACEPT
     Indication: RHEUMATOID ARTHRITIS
     Route: 042
     Dates: start: 20110606
  2. PREMARIN [Concomitant]
     Active Substance: ESTROGENS, CONJUGATED
  3. DIABEX [Concomitant]
     Active Substance: METFORMIN HYDROCHLORIDE
  4. FOLIC ACID. [Concomitant]
     Active Substance: FOLIC ACID
  5. VENTOLIN [Concomitant]
     Active Substance: ALBUTEROL SULFATE
  6. PREDNISONE. [Concomitant]
     Active Substance: PREDNISONE
  7. METHOTREXATE [Concomitant]
     Active Substance: METHOTREXATE
  8. SERETIDE [Concomitant]
     Active Substance: FLUTICASONE FUROATE\SALMETEROL XINAFOATE
  9. THYROXINE [Concomitant]
     Active Substance: LEVOTHYROXINE
  10. PROVERA [Concomitant]
     Active Substance: MEDROXYPROGESTERONE ACETATE

REACTIONS (2)
  - Arthralgia [Unknown]
  - Arthropathy [Unknown]

NARRATIVE: CASE EVENT DATE: 20131120
